FAERS Safety Report 10182553 (Version 1)
Quarter: 2014Q2

REPORT INFORMATION
  Report Type: Spontaneous
  Country: US (occurrence: None)
  Receive Date: 20140519
  Receipt Date: 20140519
  Transmission Date: 20141212
  Serious: Yes (Life-Threatening, Hospitalization, Disabling)
  Sender: FDA-Public Use
  Company Number: None

PATIENT
  Age: 49 Year
  Sex: Male
  Weight: 77.11 kg

DRUGS (1)
  1. CIPRO [Suspect]
     Indication: ABDOMINAL INFECTION
     Dosage: TAKEN BY MOUTH
     Dates: start: 20130923, end: 20140501

REACTIONS (14)
  - Mental disorder [None]
  - Memory impairment [None]
  - Panic attack [None]
  - Confusional state [None]
  - Arthritis [None]
  - Cartilage injury [None]
  - Tooth extraction [None]
  - Pain [None]
  - Visual impairment [None]
  - Hallucination, auditory [None]
  - Arthralgia [None]
  - Injury [None]
  - Tooth fracture [None]
  - Dental caries [None]
